FAERS Safety Report 6259209-7 (Version None)
Quarter: 2009Q3

REPORT INFORMATION
  Report Type: 
  Country: None (occurrence: None)
  Receive Date: 20090707
  Receipt Date: 20090629
  Transmission Date: 20100115
  Serious: Yes (Other)
  Sender: FDA-Public Use
  Company Number: US-AVENTIS-200915709US

PATIENT
  Sex: Male

DRUGS (4)
  1. APIDRA [Suspect]
     Route: 058
     Dates: start: 20060101
  2. OPTICLIK GREY [Suspect]
     Dates: start: 20060101
  3. TEARS NATURALE II [Concomitant]
     Dosage: DOSE: UNK
     Route: 047
  4. UNKNOWN DRUG [Concomitant]
     Dosage: DOSE: UNK

REACTIONS (2)
  - CATARACT [None]
  - VISUAL IMPAIRMENT [None]
